FAERS Safety Report 20417075 (Version 2)
Quarter: 2022Q1

REPORT INFORMATION
  Report Type: Spontaneous
  Country: JP (occurrence: JP)
  Receive Date: 20220202
  Receipt Date: 20220316
  Transmission Date: 20220424
  Serious: Yes (Hospitalization)
  Sender: FDA-Public Use
  Company Number: JP-Eisai-202111273_LEN-HCC_P_1

PATIENT

DRUGS (1)
  1. LENVIMA [Suspect]
     Active Substance: LENVATINIB
     Indication: Hepatocellular carcinoma
     Dosage: DOSE AND FREQUENCY UNKNOWN
     Route: 048
     Dates: start: 202112, end: 202202

REACTIONS (5)
  - Hypertension [Recovering/Resolving]
  - Malignant neoplasm progression [Unknown]
  - Dizziness [Unknown]
  - Dysphonia [Unknown]
  - Proteinuria [Unknown]

NARRATIVE: CASE EVENT DATE: 20220201
